FAERS Safety Report 4623674-9 (Version None)
Quarter: 2005Q1

REPORT INFORMATION
  Report Type: 
  Country: None (occurrence: None)
  Receive Date: 20050331
  Receipt Date: 20050321
  Transmission Date: 20050727
  Serious: Yes (Hospitalization, Other)
  Sender: FDA-Public Use
  Company Number: US-JNJFOC-20050100789

PATIENT
  Sex: Female
  Weight: 60.78 kg

DRUGS (6)
  1. REMICADE [Suspect]
     Route: 042
  2. REMICADE [Suspect]
     Route: 042
  3. REMICADE [Suspect]
     Route: 042
  4. REMICADE [Suspect]
     Indication: CROHN'S DISEASE
     Route: 042
  5. ASACOL [Concomitant]
  6. PAXIL [Concomitant]

REACTIONS (7)
  - ABSCESS [None]
  - CROHN'S DISEASE [None]
  - DYSPLASIA [None]
  - ENTEROCOLONIC FISTULA [None]
  - INFLAMMATION [None]
  - INTESTINAL POLYP [None]
  - PERICARDIAL EFFUSION [None]
